FAERS Safety Report 11119601 (Version 2)
Quarter: 2015Q3

REPORT INFORMATION
  Report Type: Spontaneous
  Country: US (occurrence: US)
  Receive Date: 20150518
  Receipt Date: 20150729
  Transmission Date: 20151125
  Serious: Yes (Other)
  Sender: FDA-Public Use
  Company Number: US-GLAXOSMITHKLINE-US2015GSK065325

PATIENT
  Age: 69 Year
  Sex: Male

DRUGS (2)
  1. KEPPRA [Suspect]
     Active Substance: LEVETIRACETAM
     Indication: SEIZURE
     Dosage: UNK, U
  2. VOTRIENT [Suspect]
     Active Substance: PAZOPANIB HYDROCHLORIDE
     Indication: RENAL CELL CARCINOMA
     Dosage: 800 MG, QD
     Dates: start: 20141015

REACTIONS (5)
  - Staring [Unknown]
  - Diarrhoea [Not Recovered/Not Resolved]
  - Drooling [Unknown]
  - Seizure [Unknown]
  - Tremor [Unknown]

NARRATIVE: CASE EVENT DATE: 201504
